FAERS Safety Report 11778756 (Version 1)
Quarter: 2015Q4

REPORT INFORMATION
  Report Type: Spontaneous
  Country: BR (occurrence: BR)
  Receive Date: 20151125
  Receipt Date: 20151125
  Transmission Date: 20160304
  Serious: Yes (Hospitalization, Other)
  Sender: FDA-Public Use
  Company Number: PHHY2015BR153739

PATIENT
  Sex: Female

DRUGS (3)
  1. DIOVAN [Suspect]
     Active Substance: VALSARTAN
     Indication: HEART RATE ABNORMAL
  2. LORAX                                   /BRA/ [Concomitant]
     Active Substance: LORAZEPAM
     Indication: SYNCOPE
     Dosage: 4 MG, BID
     Route: 065
  3. DIOVAN [Suspect]
     Active Substance: VALSARTAN
     Indication: BLOOD PRESSURE ABNORMAL
     Dosage: UNK
     Route: 065

REACTIONS (11)
  - Headache [Unknown]
  - Dyspnoea [Unknown]
  - Mouth injury [Not Recovered/Not Resolved]
  - Bone lesion [Not Recovered/Not Resolved]
  - Drug hypersensitivity [Not Recovered/Not Resolved]
  - Cerebral ischaemia [Not Recovered/Not Resolved]
  - Heart rate abnormal [Recovering/Resolving]
  - Aphonia [Unknown]
  - Blood pressure abnormal [Not Recovered/Not Resolved]
  - Asthma [Not Recovered/Not Resolved]
  - Hyperthyroidism [Recovering/Resolving]
